FAERS Safety Report 5752142-6 (Version None)
Quarter: 2008Q2

REPORT INFORMATION
  Report Type: 
  Country: None (occurrence: None)
  Receive Date: 20080527
  Receipt Date: 20080508
  Transmission Date: 20081010
  Serious: Yes (Hospitalization)
  Sender: FDA-Public Use
  Company Number: 2008AL004661

PATIENT
  Age: 53 Year
  Sex: Female
  Weight: 111.1313 kg

DRUGS (12)
  1. DIGOXIN [Suspect]
  2. HUMULIN R [Concomitant]
  3. COREG [Concomitant]
  4. BENICAR [Concomitant]
  5. INCUR [Concomitant]
  6. LANOXIN [Concomitant]
  7. LASIX [Concomitant]
  8. K-DUR [Concomitant]
  9. GLUCOTROL [Concomitant]
  10. ELAVIL [Concomitant]
  11. NORCO [Concomitant]
  12. ASPIRIN [Concomitant]

REACTIONS (7)
  - CHEST PAIN [None]
  - COLD SWEAT [None]
  - DIZZINESS [None]
  - HYPERTENSION [None]
  - MYOCARDIAL INFARCTION [None]
  - NAUSEA [None]
  - VOMITING [None]
